FAERS Safety Report 18472899 (Version 1)
Quarter: 2020Q4

REPORT INFORMATION
  Report Type: Spontaneous
  Country: CA (occurrence: CA)
  Receive Date: 20201106
  Receipt Date: 20201106
  Transmission Date: 20210114
  Serious: Yes (Death, Hospitalization)
  Sender: FDA-Public Use
  Company Number: CA-JNJFOC-A-NJ2020-200108

PATIENT
  Age: 67 Year
  Sex: Female

DRUGS (15)
  1. TRACLEER [Suspect]
     Active Substance: BOSENTAN
     Indication: PULMONARY ARTERIAL HYPERTENSION
     Dosage: 125 MG, QD
     Route: 048
     Dates: start: 20190904
  2. TRACLEER [Suspect]
     Active Substance: BOSENTAN
     Dosage: 125 MG, UNK
     Route: 048
  3. ASA [Concomitant]
     Active Substance: ASPIRIN
  4. ADALAT [Concomitant]
     Active Substance: NIFEDIPINE
  5. PRAMIPEXOLE. [Concomitant]
     Active Substance: PRAMIPEXOLE
  6. ESCITALOPRAM [Concomitant]
     Active Substance: ESCITALOPRAM OXALATE
  7. FUROSEMIDE. [Concomitant]
     Active Substance: FUROSEMIDE
  8. WARFARIN [Concomitant]
     Active Substance: WARFARIN
  9. IRON [Concomitant]
     Active Substance: IRON
  10. PANTOPRAZOLE [Concomitant]
     Active Substance: PANTOPRAZOLE
  11. FE [Concomitant]
     Active Substance: IRON
  12. HCTZ [Concomitant]
     Active Substance: HYDROCHLOROTHIAZIDE
  13. REVATIO [Concomitant]
     Active Substance: SILDENAFIL CITRATE
     Indication: PULMONARY ARTERIAL HYPERTENSION
     Dosage: UNK MG
     Route: 048
  14. LEVOTHYROXINE. [Concomitant]
     Active Substance: LEVOTHYROXINE
  15. MELATONIN [Concomitant]
     Active Substance: MELATONIN

REACTIONS (6)
  - Death [Fatal]
  - Hospitalisation [Recovered/Resolved]
  - Pneumonia aspiration [Not Recovered/Not Resolved]
  - Polyuria [Not Recovered/Not Resolved]
  - Memory impairment [Not Recovered/Not Resolved]
  - Dyspnoea [Not Recovered/Not Resolved]
